FAERS Safety Report 8122838-X (Version None)
Quarter: 2012Q1

REPORT INFORMATION
  Report Type: 
  Country: None (occurrence: None)
  Receive Date: 20120208
  Receipt Date: 20120202
  Transmission Date: 20120608
  Serious: Yes (Other)
  Sender: FDA-Public Use
  Company Number: US-PFIZER INC-2012029723

PATIENT
  Sex: Female

DRUGS (4)
  1. CELEBREX [Suspect]
     Indication: ARTHRALGIA
     Dosage: 200 MG, 1X/DAY
     Route: 048
     Dates: start: 19910101
  2. CYMBALTA [Concomitant]
     Dosage: UNK
  3. NEURONTIN [Concomitant]
     Dosage: UNK
  4. ARTHROTEC [Suspect]
     Indication: ARTHRALGIA
     Dosage: 75MG/200MCG  MG, 2X/DAY
     Route: 048
     Dates: start: 20040101, end: 20120202

REACTIONS (7)
  - NEURALGIA [None]
  - FIBROMYALGIA [None]
  - TYPE 2 DIABETES MELLITUS [None]
  - HYPERTENSION [None]
  - ARTHRALGIA [None]
  - INTERVERTEBRAL DISC DEGENERATION [None]
  - DRUG INEFFECTIVE [None]
